FAERS Safety Report 24397125 (Version 1)
Quarter: 2024Q4

REPORT INFORMATION
  Report Type: Spontaneous
  Country: US (occurrence: US)
  Receive Date: 20241004
  Receipt Date: 20241004
  Transmission Date: 20250115
  Serious: No
  Sender: ABBVIE
  Company Number: US-ABBVIE-5945454

PATIENT
  Sex: Female

DRUGS (1)
  1. RISANKIZUMAB [Suspect]
     Active Substance: RISANKIZUMAB
     Indication: Guttate psoriasis
     Dosage: FORM STRENGTH:150 MILLIGRAM
     Route: 058
     Dates: start: 202302

REACTIONS (1)
  - Off label use [Unknown]
